FAERS Safety Report 15389712 (Version 3)
Quarter: 2018Q4

REPORT INFORMATION
  Report Type: Spontaneous
  Country: IT (occurrence: IT)
  Receive Date: 20180917
  Receipt Date: 20181029
  Transmission Date: 20190204
  Serious: Yes (Life-Threatening)
  Sender: FDA-Public Use
  Company Number: IT-TEVA-2018-IT-955010

PATIENT
  Age: 72 Year
  Sex: Female

DRUGS (12)
  1. TRIAMLO, 5 MG/5 MG, CAPSULE RIGIDE [Concomitant]
     Route: 065
  2. LANTUS [Concomitant]
     Active Substance: INSULIN GLARGINE
     Route: 065
  3. FUROSEMIDE. [Concomitant]
     Active Substance: FUROSEMIDE
     Route: 065
  4. RISEDRONATE SODIUM. [Concomitant]
     Active Substance: RISEDRONATE SODIUM
     Route: 065
  5. NOVORAPID [Concomitant]
     Active Substance: INSULIN ASPART
     Route: 065
  6. ALLOPURINOL. [Concomitant]
     Active Substance: ALLOPURINOL
     Route: 065
  7. METFORMIN [Suspect]
     Active Substance: METFORMIN HYDROCHLORIDE
     Indication: DIABETES MELLITUS
     Dosage: 1500 MILLIGRAM DAILY;
     Route: 048
     Dates: start: 20140101, end: 20180822
  8. PALEXIA [Concomitant]
     Active Substance: TAPENTADOL HYDROCHLORIDE
     Dosage: 100 MILLIGRAM DAILY;
     Route: 065
  9. PREGABALIN. [Concomitant]
     Active Substance: PREGABALIN
     Route: 065
  10. CARDIRENE [Concomitant]
     Active Substance: ASPIRIN DL-LYSINE
     Route: 065
  11. LUVION 50 MG COMPRESSE [Concomitant]
     Route: 065
  12. CALCITRIOL. [Concomitant]
     Active Substance: CALCITRIOL
     Route: 065

REACTIONS (1)
  - Acidosis [Recovering/Resolving]

NARRATIVE: CASE EVENT DATE: 20180822
